FAERS Safety Report 11203253 (Version 1)
Quarter: 2015Q2

REPORT INFORMATION
  Report Type: Spontaneous
  Country: ES (occurrence: ES)
  Receive Date: 20150619
  Receipt Date: 20150619
  Transmission Date: 20150821
  Serious: Yes (Hospitalization)
  Sender: FDA-Public Use
  Company Number: ES-ABBVIE-15P-144-1412479-00

PATIENT
  Age: 27 Year
  Sex: Male

DRUGS (6)
  1. DEPAKINE [Suspect]
     Active Substance: VALPROATE SODIUM
     Route: 048
     Dates: end: 20140609
  2. DEPAKINE [Suspect]
     Active Substance: VALPROATE SODIUM
     Indication: EPILEPSY
     Route: 048
  3. DEPAKINE [Suspect]
     Active Substance: VALPROATE SODIUM
     Route: 048
     Dates: start: 201403
  4. DEPAKINE [Suspect]
     Active Substance: VALPROATE SODIUM
     Route: 048
  5. RIVOTRIL [Concomitant]
     Active Substance: CLONAZEPAM
     Indication: PRODUCT USED FOR UNKNOWN INDICATION
     Dates: start: 201403
  6. ZYPREXA [Suspect]
     Active Substance: OLANZAPINE
     Indication: AGITATION
     Route: 048
     Dates: start: 20140511, end: 20140609

REACTIONS (2)
  - Hyperthermia [Recovered/Resolved]
  - Hepatic failure [Recovering/Resolving]

NARRATIVE: CASE EVENT DATE: 20140609
